FAERS Safety Report 7903504-X (Version None)
Quarter: 2011Q4

REPORT INFORMATION
  Report Type: 
  Country: None (occurrence: None)
  Receive Date: 20111109
  Receipt Date: 20111105
  Transmission Date: 20120403
  Serious: No
  Sender: FDA-Public Use
  Company Number: US-TEVA-308207USA

PATIENT
  Sex: Female
  Weight: 54.48 kg

DRUGS (1)
  1. PLAN B ONE-STEP [Suspect]
     Indication: POST COITAL CONTRACEPTION
     Dosage: 1.5 MILLIGRAM;
     Route: 048
     Dates: start: 20110925, end: 20110925

REACTIONS (4)
  - VAGINAL DISCHARGE [None]
  - VAGINAL ODOUR [None]
  - MENSTRUATION IRREGULAR [None]
  - FATIGUE [None]
